FAERS Safety Report 18889253 (Version 2)
Quarter: 2021Q1

REPORT INFORMATION
  Report Type: Spontaneous
  Country: GB (occurrence: GB)
  Receive Date: 20210212
  Receipt Date: 20210304
  Transmission Date: 20210420
  Serious: Yes (Death, Hospitalization, Other)
  Sender: FDA-Public Use
  Company Number: GB-BAXTER-2021BAX002470

PATIENT
  Age: 68 Year
  Sex: Male
  Weight: 103.6 kg

DRUGS (11)
  1. DEXAMETHASONE. [Suspect]
     Active Substance: DEXAMETHASONE
     Indication: PLASMA CELL MYELOMA
     Dosage: DAY 1, 4, 8, 11, DOSAGE FORM: TABLET
     Route: 048
     Dates: start: 20190508, end: 20190521
  2. VELCADE [Suspect]
     Active Substance: BORTEZOMIB
     Indication: PLASMA CELL LEUKAEMIA
     Dosage: UNK
     Route: 065
  3. LENALIDOMIDE [Suspect]
     Active Substance: LENALIDOMIDE
     Dosage: EACH DAY FOR 14 DAYS, DOSAGE FORM: TABLET
     Route: 048
     Dates: start: 20190508, end: 20190521
  4. VELCADE [Suspect]
     Active Substance: BORTEZOMIB
     Indication: PLASMA CELL MYELOMA
     Dosage: DAY 1, 4, 8, 11
     Route: 058
     Dates: start: 20190508, end: 20190521
  5. CYCLOPHOSPHAMIDE TABLETS 50 MG [Suspect]
     Active Substance: CYCLOPHOSPHAMIDE
     Indication: PLASMA CELL MYELOMA
     Dosage: DAY 1, 8, DOSAGE FORM: TABLET
     Route: 048
     Dates: start: 20190508, end: 20190521
  6. LENALIDOMIDE [Suspect]
     Active Substance: LENALIDOMIDE
     Indication: PLASMA CELL MYELOMA
     Dosage: EACH DAY FOR 14 DAYS, DOSAGE FORM: TABLET
     Route: 048
     Dates: start: 20190508, end: 20190521
  7. CYCLOPHOSPHAMIDE TABLETS 50 MG [Suspect]
     Active Substance: CYCLOPHOSPHAMIDE
     Indication: PLASMA CELL LEUKAEMIA
     Dosage: UNK
     Route: 065
  8. DARATUMUMAB [Suspect]
     Active Substance: DARATUMUMAB
     Indication: PLASMA CELL LEUKAEMIA
     Dosage: UNK
     Route: 065
  9. DARATUMUMAB [Suspect]
     Active Substance: DARATUMUMAB
     Indication: PLASMA CELL MYELOMA
     Dosage: DAY 1, 8, 15, DOSAGE FORM: CONCENTRATE FOR SOLUTION FOR INFUSION
     Route: 042
     Dates: start: 20190509, end: 20190521
  10. LENALIDOMIDE [Suspect]
     Active Substance: LENALIDOMIDE
     Indication: PLASMA CELL LEUKAEMIA
     Dosage: UNK
     Route: 065
  11. DEXAMETHASONE SODIUM PHOSPHATE. [Suspect]
     Active Substance: DEXAMETHASONE SODIUM PHOSPHATE
     Indication: PLASMA CELL LEUKAEMIA
     Dosage: UNK
     Route: 065

REACTIONS (8)
  - Encephalopathy [Fatal]
  - Oxygen saturation decreased [Unknown]
  - Fungal test positive [Recovered/Resolved]
  - Blood pressure systolic decreased [Unknown]
  - Cold sweat [Unknown]
  - Lethargy [Unknown]
  - Atrial fibrillation [Unknown]
  - Respirovirus test positive [Unknown]

NARRATIVE: CASE EVENT DATE: 20190516
